FAERS Safety Report 7920404-X (Version None)
Quarter: 2011Q4

REPORT INFORMATION
  Report Type: 
  Country: None (occurrence: None)
  Receive Date: 20111117
  Receipt Date: 20111103
  Transmission Date: 20120403
  Serious: Yes (Other)
  Sender: FDA-Public Use
  Company Number: PHHY2011BR88536

PATIENT
  Sex: Female

DRUGS (3)
  1. BEROTEC [Concomitant]
     Dosage: UNK UKN, UNK
     Dates: start: 20110901
  2. ALDOMET [Concomitant]
     Indication: BLOOD PRESSURE INCREASED
     Dosage: 2 DF, DAILY
  3. DIOVAN [Suspect]
     Indication: HYPERTENSION
     Dosage: 80 MG, UNK
     Dates: start: 20070101

REACTIONS (2)
  - ASTHMA [None]
  - RHINITIS ALLERGIC [None]
